FAERS Safety Report 7107419-9 (Version None)
Quarter: 2010Q4

REPORT INFORMATION
  Report Type: 
  Country: None (occurrence: None)
  Receive Date: 20101104
  Receipt Date: 20101019
  Transmission Date: 20110411
  Serious: Yes (Hospitalization)
  Sender: FDA-Public Use
  Company Number: B0681690A

PATIENT
  Age: 72 Year
  Sex: Male

DRUGS (2)
  1. ROPINIROLE HYDROCHLORIDE [Suspect]
     Indication: PARKINSON'S DISEASE
     Dosage: 15 MG/ PER DAY
  2. CO-CARELDOPA [Concomitant]

REACTIONS (5)
  - BLOOD IMMUNOGLOBULIN A INCREASED [None]
  - DECREASED APPETITE [None]
  - INTRACRANIAL ANEURYSM [None]
  - NORMOCHROMIC NORMOCYTIC ANAEMIA [None]
  - PYREXIA [None]
